FAERS Safety Report 9804606 (Version 3)
Quarter: 2014Q1

REPORT INFORMATION
  Report Type: Spontaneous
  Country: DE (occurrence: DE)
  Receive Date: 20140108
  Receipt Date: 20140114
  Transmission Date: 20141002
  Serious: Yes (Other)
  Sender: FDA-Public Use
  Company Number: DE-PFIZER INC-2014001183

PATIENT
  Age: 20 Year
  Sex: Male

DRUGS (8)
  1. RIFAMPICIN [Suspect]
     Indication: STAPHYLOCOCCAL INFECTION
     Dosage: UNK
  2. RIFAMPICIN [Interacting]
     Indication: STAPHYLOCOCCAL ABSCESS
  3. RIFAMPICIN [Interacting]
     Indication: LIVER ABSCESS
  4. POSACONAZOLE [Interacting]
     Indication: FUNGAL INFECTION
     Dosage: 200 MG, 4X/DAY
  5. POSACONAZOLE [Interacting]
     Indication: ASPERGILLUS INFECTION
  6. VANCOMYCIN [Concomitant]
     Dosage: UNK
  7. CIPROFLOXACIN [Concomitant]
     Dosage: UNK
  8. LINEZOLID [Concomitant]
     Dosage: UNK

REACTIONS (2)
  - Drug interaction [Unknown]
  - Drug level decreased [Unknown]
